FAERS Safety Report 26145615 (Version 1)
Quarter: 2025Q4

REPORT INFORMATION
  Report Type: Report from Study
  Country: AU (occurrence: AU)
  Receive Date: 20251211
  Receipt Date: 20251211
  Transmission Date: 20260118
  Serious: Yes (Hospitalization, Other)
  Sender: NOVARTIS
  Company Number: AU-002147023-NVSC2025AU188994

PATIENT
  Sex: Male

DRUGS (2)
  1. MEKINIST [Suspect]
     Active Substance: TRAMETINIB DIMETHYL SULFOXIDE
     Indication: Astrocytoma
     Dosage: 0.05MG/ML 4.7MG
     Route: 048
  2. MEKINIST [Suspect]
     Active Substance: TRAMETINIB DIMETHYL SULFOXIDE
     Indication: BRAF V600E mutation positive

REACTIONS (12)
  - Hypotension [Unknown]
  - Acidosis [Unknown]
  - Lipase increased [Unknown]
  - Dermatitis acneiform [Unknown]
  - Eczema [Unknown]
  - Mucosal inflammation [Unknown]
  - Embolism arterial [Unknown]
  - Pancreatitis [Unknown]
  - Hypokalaemia [Unknown]
  - Hypernatraemia [Unknown]
  - International normalised ratio increased [Unknown]
  - Anaemia [Unknown]
